FAERS Safety Report 7236597-6 (Version None)
Quarter: 2011Q1

REPORT INFORMATION
  Report Type: 
  Country: None (occurrence: None)
  Receive Date: 20110113
  Receipt Date: 20110103
  Transmission Date: 20110831
  Serious: Yes (Other)
  Sender: FDA-Public Use
  Company Number: 1000016428

PATIENT
  Age: 47 Year
  Sex: Female
  Weight: 65 kg

DRUGS (4)
  1. NEBIVOLOL (NEBIVOLOL HYDROCHLORIDE) [Suspect]
     Indication: HYPERTENSION
     Dosage: 5 MG (5 MG, 1 IN 1 D), ORAL
     Route: 048
     Dates: start: 20100910, end: 20101221
  2. ATORVASTATIN CALCIUM [Concomitant]
  3. LAROXYL (AMITRIPTYLINE HYDROCHLORIDE) (AMITRIPTYLINE HYDROCHLORIDE) [Concomitant]
  4. NOCTAMIDE (LORMETAZEPAM) (LORMETAZEPAM) [Concomitant]

REACTIONS (3)
  - AMNESIA [None]
  - ALTERED VISUAL DEPTH PERCEPTION [None]
  - ROAD TRAFFIC ACCIDENT [None]
